FAERS Safety Report 6071815-1 (Version None)
Quarter: 2009Q1

REPORT INFORMATION
  Report Type: 
  Country: None (occurrence: None)
  Receive Date: 20090210
  Receipt Date: 20090130
  Transmission Date: 20090719
  Serious: Yes (Other)
  Sender: FDA-Public Use
  Company Number: PHHY2009CA03613

PATIENT
  Sex: Female

DRUGS (1)
  1. ACLASTA [Suspect]
     Indication: OSTEOPOROSIS
     Dosage: UNK
     Dates: start: 20090128

REACTIONS (4)
  - CONSTIPATION [None]
  - DIZZINESS [None]
  - FAECES HARD [None]
  - LOSS OF CONSCIOUSNESS [None]
